FAERS Safety Report 16397235 (Version 1)
Quarter: 2019Q2

REPORT INFORMATION
  Report Type: Spontaneous
  Country: US (occurrence: US)
  Receive Date: 20190606
  Receipt Date: 20190606
  Transmission Date: 20190711
  Serious: No
  Sender: FDA-Public Use
  Company Number: US-GLENMARK PHARMACEUTICALS-2019GMK039668

PATIENT

DRUGS (1)
  1. MUPIROCIN OINTMENT USP, 2% [Suspect]
     Active Substance: MUPIROCIN
     Indication: POSTOPERATIVE WOUND COMPLICATION
     Dosage: UNK, BID
     Route: 061
     Dates: start: 20190131

REACTIONS (4)
  - Inappropriate schedule of product administration [Unknown]
  - No adverse event [Unknown]
  - Drug effective for unapproved indication [Unknown]
  - Product dispensing error [Unknown]

NARRATIVE: CASE EVENT DATE: 20190131
